FAERS Safety Report 4346019-0 (Version None)
Quarter: 2004Q2

REPORT INFORMATION
  Report Type: 
  Country: None (occurrence: None)
  Receive Date: 20040426
  Receipt Date: 20040317
  Transmission Date: 20050107
  Serious: Yes (Other)
  Sender: FDA-Public Use
  Company Number: PHEH2004US03193

PATIENT
  Age: 61 Year
  Sex: Female

DRUGS (4)
  1. AREDIA [Suspect]
     Indication: PROPHYLAXIS
     Dosage: 90MG Q4WKS
     Route: 042
     Dates: start: 20021004, end: 20040301
  2. TAXOTERE [Concomitant]
     Dosage: 125 MG Q3WK
     Dates: start: 20021001, end: 20030610
  3. XELODA [Concomitant]
     Dosage: 2500MG DAY 1-14
     Dates: start: 20021001, end: 20040119
  4. HERCEPTIN [Concomitant]
     Dosage: 200 MG/ Q3WK
     Dates: start: 20030721

REACTIONS (10)
  - APHTHOUS STOMATITIS [None]
  - BONE DISORDER [None]
  - BONE OPERATION [None]
  - DIARRHOEA [None]
  - IMPAIRED HEALING [None]
  - INFLAMMATION [None]
  - ORAL DISCOMFORT [None]
  - OSTEONECROSIS [None]
  - TENDON DISORDER [None]
  - TOOTH EXTRACTION [None]
